FAERS Safety Report 7396370-5 (Version None)
Quarter: 2011Q2

REPORT INFORMATION
  Report Type: 
  Country: None (occurrence: None)
  Receive Date: 20110406
  Receipt Date: 20091119
  Transmission Date: 20111010
  Serious: Yes (Death, Other)
  Sender: FDA-Public Use
  Company Number: US-BAYER-200939906NA

PATIENT
  Sex: Female
  Weight: 95.238 kg

DRUGS (23)
  1. INSULIN 2 [Concomitant]
     Dosage: UNK
     Route: 042
     Dates: start: 20030317
  2. CALCIUM CHLORIDE ANHYDROUS [Concomitant]
     Dosage: UNK
     Route: 042
     Dates: start: 20030317
  3. COZAAR [Concomitant]
     Dosage: 100 MG, QD
     Route: 048
  4. SYNTHROID [Concomitant]
     Dosage: 0.25 MG, QD
     Route: 048
  5. RED BLOOD CELLS [Concomitant]
  6. TRASYLOL [Suspect]
     Dosage: 250 ML PER CARDIOPULMONARY BYPASS
  7. TRASYLOL [Suspect]
     Dosage: 200 ML FOLLOWED BY 50 ML/HOUR DRIP
  8. HEPARIN [Concomitant]
     Dosage: 1000 UNITS/HRS
     Route: 042
     Dates: start: 20030313
  9. PROTAMINE SULFATE [Concomitant]
     Dosage: UNK
     Route: 042
     Dates: start: 20030317
  10. SODIUM NITROPRUSSIDE [Concomitant]
     Dosage: UNK
     Route: 042
     Dates: start: 20030317
  11. NORVASC [Concomitant]
     Dosage: 10 MG, QD
     Route: 048
  12. AMARYL [Concomitant]
     Dosage: 4 MG, QD
     Route: 048
  13. HEPARIN [Concomitant]
     Dosage: UNK
     Route: 042
     Dates: start: 20030317
  14. PANCURONIUM BROMIDE [Concomitant]
     Dosage: UNK
     Route: 042
     Dates: start: 20030317
  15. LASIX + K [Concomitant]
     Dosage: 80 MG, QD
  16. VALIUM NOVUM [Concomitant]
     Dosage: 2 MG, PRN
     Route: 048
  17. ZOCOR [Concomitant]
     Dosage: 40 MG, QD
  18. LIDOCAINE [Concomitant]
     Dosage: UNK
     Route: 042
     Dates: start: 20030317
  19. TRASYLOL [Suspect]
     Indication: CORONARY ARTERY BYPASS
     Dosage: 1 ML, UNK
     Route: 042
     Dates: start: 20030317, end: 20030317
  20. PLAVIX [Concomitant]
     Dosage: 75 MG, QD
     Route: 048
  21. ACTOS [Concomitant]
     Dosage: 45 MG, QD
     Route: 048
  22. PREMARIN ASAHIKASEI [Concomitant]
     Dosage: 0.625 MG, QD
     Route: 048
  23. ALLEGRA [Concomitant]
     Dosage: 180 MG, QD
     Route: 048

REACTIONS (19)
  - ANHEDONIA [None]
  - RENAL TUBULAR NECROSIS [None]
  - RENAL FAILURE [None]
  - STRESS [None]
  - FEAR [None]
  - PAIN [None]
  - RENAL FAILURE ACUTE [None]
  - RESPIRATORY FAILURE [None]
  - PERITONITIS [None]
  - MEDICAL DEVICE COMPLICATION [None]
  - DEATH [None]
  - UNEVALUABLE EVENT [None]
  - EMOTIONAL DISTRESS [None]
  - INJURY [None]
  - RENAL IMPAIRMENT [None]
  - RENAL FAILURE CHRONIC [None]
  - RENAL INJURY [None]
  - ANXIETY [None]
  - PNEUMONIA [None]
